FAERS Safety Report 9649186 (Version 2)
Quarter: 2013Q4

REPORT INFORMATION
  Report Type: Report from Study
  Country: JP (occurrence: JP)
  Receive Date: 20131028
  Receipt Date: 20131115
  Transmission Date: 20140711
  Serious: Yes (Death)
  Sender: FDA-Public Use
  Company Number: JP-PFIZER INC-2013303251

PATIENT
  Age: 81 Year
  Sex: Male

DRUGS (4)
  1. DOCETAXEL [Suspect]
     Indication: PROSTATE CANCER
     Dosage: 70 MG/M2, DAY 2 CYCLIC (1-H INFUSION ON DAY 2, AND REPEATED EVERY 21 DAYS)
     Route: 042
  2. PREDNISOLONE [Suspect]
     Indication: PROSTATE CANCER
     Dosage: 10 MG (DAILY LOW-DOSE) (DAYS 1-21), CYCLIC
     Route: 048
  3. ESTRAMUSTINE PHOSPHATE SODIUM [Concomitant]
     Indication: PROSTATE CANCER
     Dosage: 560 MG, CYCLIC (ON DAYS 1-5 AND DAYS 8-12)
     Route: 048
  4. DEXAMETHASONE [Concomitant]
     Indication: PREMEDICATION
     Dosage: 8 MG, UNK
     Route: 042

REACTIONS (1)
  - Febrile neutropenia [Fatal]
